FAERS Safety Report 6993854-6 (Version None)
Quarter: 2010Q3

REPORT INFORMATION
  Report Type: 
  Country: None (occurrence: None)
  Receive Date: 20100917
  Receipt Date: 20100723
  Transmission Date: 20110219
  Serious: Yes (Hospitalization)
  Sender: FDA-Public Use
  Company Number: US-ASTRAZENECA-2009UW17571

PATIENT
  Age: 29 Year
  Sex: Female
  Weight: 106.6 kg

DRUGS (8)
  1. SEROQUEL [Suspect]
     Indication: SCHIZOPHRENIA
     Route: 048
     Dates: start: 20050101, end: 20070101
  2. SEROQUEL [Suspect]
     Dosage: 50 MG TO 400 MG
     Route: 048
     Dates: start: 20050630
  3. ABILIFY [Concomitant]
  4. GEODON [Concomitant]
     Dates: start: 20050810
  5. HALDOL [Concomitant]
  6. STELAZINE [Concomitant]
  7. TRILAFON [Concomitant]
  8. TRIAVIL [Concomitant]

REACTIONS (3)
  - DIABETES MELLITUS [None]
  - OBESITY [None]
  - PANCREATITIS [None]
